FAERS Safety Report 6831399-4 (Version None)
Quarter: 2010Q3

REPORT INFORMATION
  Report Type: 
  Country: None (occurrence: None)
  Receive Date: 20100712
  Receipt Date: 20100708
  Transmission Date: 20110219
  Serious: Yes (Other)
  Sender: FDA-Public Use
  Company Number: B0661116A

PATIENT
  Age: 57 Year
  Sex: Female
  Weight: 121 kg

DRUGS (6)
  1. XENICAL [Suspect]
     Route: 048
     Dates: start: 20070223, end: 20070928
  2. AMPICILLIN SODIUM/SULBACTAM SODIUM [Concomitant]
  3. REDUCTIL [Concomitant]
     Route: 048
     Dates: start: 20070223
  4. BENDROFLUMETHIAZIDE [Concomitant]
     Indication: HYPERTENSION
     Route: 048
     Dates: start: 20000801
  5. ATENOLOL [Concomitant]
     Indication: HYPERTENSION
     Route: 048
     Dates: start: 20010110
  6. MELOXICAM [Concomitant]
     Route: 048
     Dates: start: 20010801

REACTIONS (1)
  - NEPHROLITHIASIS [None]
